FAERS Safety Report 5989007-0 (Version None)
Quarter: 2008Q4

REPORT INFORMATION
  Report Type: 
  Country: None (occurrence: None)
  Receive Date: 20081210
  Receipt Date: 20081203
  Transmission Date: 20090506
  Serious: Yes (Hospitalization)
  Sender: FDA-Public Use
  Company Number: A0759834A

PATIENT
  Age: 83 Year
  Sex: Female

DRUGS (3)
  1. COMPAZINE [Suspect]
     Indication: NAUSEA
     Route: 042
     Dates: start: 20081113, end: 20081113
  2. UNSPECIFIED MEDICATION [Suspect]
     Indication: COLON CANCER
     Dosage: 10MGK EVERY TWO WEEKS
     Route: 042
     Dates: start: 20080916
  3. UNKNOWN [Concomitant]

REACTIONS (10)
  - CONFUSIONAL STATE [None]
  - DISORIENTATION [None]
  - ESCHERICHIA INFECTION [None]
  - FEELING ABNORMAL [None]
  - NAUSEA [None]
  - PYREXIA [None]
  - SOMNOLENCE [None]
  - VOMITING [None]
  - WEIGHT DECREASED [None]
  - WHITE BLOOD CELL COUNT DECREASED [None]
